FAERS Safety Report 7645565-1 (Version None)
Quarter: 2011Q3

REPORT INFORMATION
  Report Type: 
  Country: None (occurrence: None)
  Receive Date: 20110729
  Receipt Date: 20110725
  Transmission Date: 20111222
  Serious: Yes (Death)
  Sender: FDA-Public Use
  Company Number: CA-ROCHE-792413

PATIENT
  Sex: Female

DRUGS (2)
  1. WATER PILL NOS [Concomitant]
  2. CAPECITABINE [Suspect]
     Dosage: FREQUENCY: DAILY
     Route: 048
     Dates: start: 20110505, end: 20110601

REACTIONS (1)
  - DEATH [None]
